FAERS Safety Report 7040363-4 (Version None)
Quarter: 2010Q4

REPORT INFORMATION
  Report Type: 
  Country: None (occurrence: None)
  Receive Date: 20101008
  Receipt Date: 20101008
  Transmission Date: 20110411
  Serious: No
  Sender: FDA-Public Use
  Company Number: None

PATIENT
  Sex: Male
  Weight: 69.9 kg

DRUGS (1)
  1. MEMANTINE [Suspect]
     Indication: NON-SMALL CELL LUNG CANCER
     Dosage: 1750 MG
     Dates: start: 20080827, end: 20081216

REACTIONS (3)
  - MALIGNANT NEOPLASM PROGRESSION [None]
  - METASTASES TO BONE [None]
  - NON-SMALL CELL LUNG CANCER [None]
